FAERS Safety Report 6632985-7 (Version None)
Quarter: 2010Q1

REPORT INFORMATION
  Report Type: 
  Country: None (occurrence: None)
  Receive Date: 20100310
  Receipt Date: 20100303
  Transmission Date: 20100710
  Serious: Yes (Death)
  Sender: FDA-Public Use
  Company Number: 1000012243

PATIENT
  Age: 42 Year
  Sex: Male

DRUGS (7)
  1. CITALOPRAM HYDROBROMIDE [Suspect]
  2. OXYCODONE [Suspect]
  3. OXYMORPHONE [Suspect]
  4. HYDROCODONE [Suspect]
  5. DIHYDROCODEINE BITARTRATE INJ [Suspect]
  6. THC [Suspect]
  7. LORAZEPAM [Suspect]

REACTIONS (2)
  - COMPLETED SUICIDE [None]
  - DRUG TOXICITY [None]
